FAERS Safety Report 9422411 (Version 1)
Quarter: 2013Q3

REPORT INFORMATION
  Report Type: Spontaneous
  Country: US (occurrence: None)
  Receive Date: 20130724
  Receipt Date: 20130724
  Transmission Date: 20140515
  Serious: Yes (Death, Hospitalization)
  Sender: FDA-Public Use
  Company Number: IBUP20130011

PATIENT
  Age: 28 Year
  Sex: Female
  Weight: 70 kg

DRUGS (6)
  1. IBUPROFEN 800MG [Suspect]
     Indication: CONTUSION
     Route: 048
  2. IBUPROFEN 800MG [Suspect]
     Indication: LIGAMENT SPRAIN
     Route: 048
  3. VALDECOXIB [Suspect]
  4. METHOCARVAMOL TABLETS 750MG (METHOCARBAMOL) (METHOCARBAMOL) [Concomitant]
  5. METHAXALONE (METAXALONE) (METAXALONE) [Concomitant]
  6. CYCLOBENZAPRINE (CYCLOBENZAPRINE) [Concomitant]

REACTIONS (22)
  - General physical health deterioration [None]
  - Hypertension [None]
  - Hyperventilation [None]
  - Abdominal pain upper [None]
  - Palpitations [None]
  - Dizziness [None]
  - Vomiting [None]
  - Abdominal pain [None]
  - Vomiting [None]
  - Glomerulonephritis [None]
  - Renal failure [None]
  - Coma [None]
  - Cerebral haemorrhage [None]
  - Haemodialysis [None]
  - Respiratory failure [None]
  - Gastritis [None]
  - Pain in extremity [None]
  - Diabetes mellitus [None]
  - Grip strength decreased [None]
  - Menorrhagia [None]
  - Cardiomyopathy [None]
  - Contraindication to medical treatment [None]
